FAERS Safety Report 5369187-0 (Version None)
Quarter: 2007Q2

REPORT INFORMATION
  Report Type: 
  Country: None (occurrence: None)
  Receive Date: 20070625
  Receipt Date: 20070611
  Transmission Date: 20071010
  Serious: Yes (Hospitalization, Disabling, Other)
  Sender: FDA-Public Use
  Company Number: US-ROCHE-483670

PATIENT
  Age: 17 Year
  Sex: Male
  Weight: 104.3 kg

DRUGS (1)
  1. ACCUTANE [Suspect]
     Indication: ACNE
     Route: 048
     Dates: start: 19940401

REACTIONS (28)
  - ANAEMIA [None]
  - ANOREXIA [None]
  - ANXIETY [None]
  - ASCITES [None]
  - AUTOIMMUNE HEPATITIS [None]
  - CHRONIC HEPATIC FAILURE [None]
  - CHRONIC HEPATITIS [None]
  - COLITIS [None]
  - COLITIS ULCERATIVE [None]
  - CROHN'S DISEASE [None]
  - DEHYDRATION [None]
  - DEPRESSION [None]
  - FATIGUE [None]
  - HEPATIC CIRRHOSIS [None]
  - HEPATIC ENZYME INCREASED [None]
  - HEPATIC FAILURE [None]
  - HYPERTENSION [None]
  - ILEITIS [None]
  - INFLAMMATORY BOWEL DISEASE [None]
  - INSOMNIA [None]
  - JAUNDICE [None]
  - MOUTH ULCERATION [None]
  - OESOPHAGEAL ULCER [None]
  - OSTEOPENIA [None]
  - PERITONITIS BACTERIAL [None]
  - RENAL FAILURE [None]
  - RENAL FAILURE ACUTE [None]
  - THROMBOCYTOPENIA [None]
